FAERS Safety Report 6528250-9 (Version None)
Quarter: 2010Q1

REPORT INFORMATION
  Report Type: 
  Country: None (occurrence: None)
  Receive Date: 20100105
  Receipt Date: 20100105
  Transmission Date: 20100710
  Serious: No
  Sender: FDA-Public Use
  Company Number: None

PATIENT
  Age: 40 Year
  Sex: Female
  Weight: 111.1313 kg

DRUGS (1)
  1. ABILIFY [Suspect]
     Indication: BIPOLAR DISORDER
     Dosage: 2.5 MG ONCE PER DAY PO
     Route: 048
     Dates: start: 20040317, end: 20091231

REACTIONS (6)
  - MIGRAINE [None]
  - NO THERAPEUTIC RESPONSE [None]
  - PAIN [None]
  - TARDIVE DYSKINESIA [None]
  - TOOTH DISORDER [None]
  - TOOTH LOSS [None]
